FAERS Safety Report 10016159 (Version 4)
Quarter: 2016Q3

REPORT INFORMATION
  Report Type: Spontaneous
  Country: GB (occurrence: GB)
  Receive Date: 20140317
  Receipt Date: 20160715
  Transmission Date: 20161108
  Serious: Yes (Other)
  Sender: FDA-Public Use
  Company Number: GB-ACTAVISPR-2014-04568

PATIENT
  Sex: Male

DRUGS (35)
  1. LEVETIRACETAM. [Suspect]
     Active Substance: LEVETIRACETAM
     Indication: PRODUCT USED FOR UNKNOWN INDICATION
     Dosage: 1250 MG, BID
     Route: 065
  2. LEVETIRACETAM ACTAVIS [Suspect]
     Active Substance: LEVETIRACETAM
     Indication: PRODUCT USED FOR UNKNOWN INDICATION
     Dosage: 1250 MG, BID
     Route: 065
  3. KEPPRA [Suspect]
     Active Substance: LEVETIRACETAM
     Dosage: 2500 MG, DAILY
     Route: 065
     Dates: start: 201212
  4. BECLOMETASONE [Concomitant]
     Active Substance: BECLOMETHASONE DIPROPIONATE
     Indication: HEADACHE
     Dosage: 2 DF (2 PUFFS), BID
     Route: 065
     Dates: start: 2007
  5. CUPLEX                             /00797901/ [Concomitant]
     Indication: SKIN PAPILLOMA
     Dosage: UNK, QPM (APPLY AT NIGHT)
     Route: 065
     Dates: start: 2013
  6. PARACETAMOL [Concomitant]
     Active Substance: ACETAMINOPHEN
     Indication: PAIN
     Dosage: UNK
     Route: 065
  7. RANITIDINE HYDROCHLORIDE. [Concomitant]
     Active Substance: RANITIDINE HYDROCHLORIDE
     Indication: PRODUCT USED FOR UNKNOWN INDICATION
     Dosage: 300 MG, 2X/DAY (BID)
     Route: 065
     Dates: start: 2007
  8. SODIUM VALPROATE [Concomitant]
     Active Substance: VALPROATE SODIUM
     Indication: PRODUCT USED FOR UNKNOWN INDICATION
     Dosage: 100 MG, UNK, AS DIRECTED
     Route: 065
     Dates: start: 2010
  9. KEPPRA [Suspect]
     Active Substance: LEVETIRACETAM
     Dosage: 500 MG, BID
     Route: 065
     Dates: start: 20120718
  10. KEPPRA [Suspect]
     Active Substance: LEVETIRACETAM
     Dosage: 750 MG, BID
     Route: 065
     Dates: start: 20121102
  11. AZELASTINE [Concomitant]
     Active Substance: AZELASTINE
     Indication: PRODUCT USED FOR UNKNOWN INDICATION
     Dosage: 1 DF (1 PUFF), BID
     Route: 065
     Dates: start: 2011
  12. FLUTICASONE FUROATE [Concomitant]
     Active Substance: FLUTICASONE FUROATE
     Indication: SINUS CONGESTION
     Dosage: 2 DF 91 PUFF TO EACH NOSTRIL), DAILY
     Route: 045
     Dates: start: 2011
  13. MIRTAZAPINE. [Concomitant]
     Active Substance: MIRTAZAPINE
     Indication: DEPRESSION
     Dosage: UNK - WEANING (DIFFERENT DOSES ADMINISTERED)
     Route: 065
     Dates: start: 2012
  14. OLANZAPINE. [Concomitant]
     Active Substance: OLANZAPINE
     Indication: DEPRESSION
     Dosage: 1 X 2.5 MG TAB ONCE DAILY, SLOWLY WEANED AND STOPPED
     Route: 048
     Dates: start: 2013, end: 20131017
  15. OPTIVE [Concomitant]
     Active Substance: CARBOXYMETHYLCELLULOSE SODIUM\GLYCERIN
     Indication: DRY EYE
     Dosage: UNK
     Route: 065
     Dates: start: 2013
  16. SODIUM VALPROATE [Concomitant]
     Active Substance: VALPROATE SODIUM
     Dosage: 200 MG, UNK
     Route: 065
     Dates: start: 2012
  17. KEPPRA [Suspect]
     Active Substance: LEVETIRACETAM
     Indication: PRODUCT USED FOR UNKNOWN INDICATION
     Dosage: 1250 MG, BID
     Route: 065
  18. KEPPRA [Suspect]
     Active Substance: LEVETIRACETAM
     Dosage: UNK - MORNING DOSE WAS REDUCED BY 250 MG (1000 MG QAM AND 1250 MG QPM)
     Route: 065
  19. CLINITAS HYDRATE [Concomitant]
     Indication: PRODUCT USED FOR UNKNOWN INDICATION
     Dosage: 1 GTT DROP(S), DAILY
     Route: 065
  20. EPILIM [Concomitant]
     Active Substance: VALPROATE SODIUM
     Indication: PRODUCT USED FOR UNKNOWN INDICATION
     Dosage: UNK (DOSE CHANGES)
     Route: 048
     Dates: start: 2009, end: 201206
  21. HYPROMELLOSE [Concomitant]
     Active Substance: HYPROMELLOSES
     Indication: DRY EYE
     Dosage: UNK (1-2 DROPS), TID
     Route: 065
     Dates: start: 2013
  22. LANSOPRAZOLE. [Concomitant]
     Active Substance: LANSOPRAZOLE
     Indication: GASTROOESOPHAGEAL REFLUX DISEASE
     Dosage: 15 MG, ONCE DAILY (QD)
     Route: 065
     Dates: start: 2007
  23. PROPRANOLOL HYDROCHLORIDE. [Concomitant]
     Active Substance: PROPRANOLOL HYDROCHLORIDE
     Indication: PRODUCT USED FOR UNKNOWN INDICATION
     Dosage: 40 MG, ONCE DAILY (QD)
     Route: 065
     Dates: start: 2012
  24. QUETIAPINE. [Concomitant]
     Active Substance: QUETIAPINE
     Indication: DEPRESSION
     Dosage: 25 MG, UNK, THEN CONSEQUENT DOSE CHANGES
     Route: 065
  25. CHLORAMPHENICOL [Concomitant]
     Active Substance: CHLORAMPHENICOL
     Indication: PRODUCT USED FOR UNKNOWN INDICATION
     Dosage: 1 GTT, 4X/DAY (QID)
     Route: 065
     Dates: start: 2012
  26. IBUPROFEN. [Concomitant]
     Active Substance: IBUPROFEN
     Indication: BACK PAIN
     Dosage: 400 MG, 3X/DAY (TID)
     Route: 065
     Dates: start: 2007
  27. AMOXICILLIN. [Concomitant]
     Active Substance: AMOXICILLIN
     Indication: PRODUCT USED FOR UNKNOWN INDICATION
     Dosage: 250 MG, 3X/DAY (TID)
     Route: 065
     Dates: start: 2010
  28. FLUCLOXACILLIN [Concomitant]
     Active Substance: FLUCLOXACILLIN
     Indication: PRODUCT USED FOR UNKNOWN INDICATION
     Dosage: 250 MG, 4X/DAY (QID), CONSEQUENNT DOSE CHANGES
     Route: 065
     Dates: start: 2014
  29. PIROXICAM. [Concomitant]
     Active Substance: PIROXICAM
     Indication: PRODUCT USED FOR UNKNOWN INDICATION
     Dosage: UNK - APPLY 2-3 TIMES DAILY
     Route: 065
     Dates: start: 2011
  30. KEPPRA [Suspect]
     Active Substance: LEVETIRACETAM
     Dosage: 250 UNK, UNK
     Route: 065
     Dates: start: 2012, end: 2012
  31. PSEUDOEPHEDRINE [Concomitant]
     Active Substance: PSEUDOEPHEDRINE
     Indication: PRODUCT USED FOR UNKNOWN INDICATION
     Dosage: 60 MG, 4X/DAY (QID)
     Route: 065
     Dates: start: 2007
  32. LIQUIFILM TEARS [Concomitant]
     Active Substance: POLYVINYL ALCOHOL
     Indication: PRODUCT USED FOR UNKNOWN INDICATION
     Dosage: UNK (1-2 DROPS), PRN
     Route: 065
     Dates: start: 2013
  33. KEPPRA [Suspect]
     Active Substance: LEVETIRACETAM
     Dosage: 2250 MG, DAILY (1000 MG BID ALONG WITH 250 MG QAM FOR 7 DAYS)
     Route: 065
     Dates: start: 201212, end: 201212
  34. BECONASE AQ [Concomitant]
     Active Substance: BECLOMETHASONE DIPROPIONATE MONOHYDRATE
     Indication: OROPHARYNGEAL PAIN
     Dosage: 2 DF 92 PUFFS), BID
     Route: 065
     Dates: start: 2007
  35. DOXYCYCLINE HYDROCHLORIDE [Concomitant]
     Active Substance: DOXYCYCLINE HYDROCHLORIDE
     Indication: PRODUCT USED FOR UNKNOWN INDICATION
     Dosage: 100 MG, ONCE DAILY (QD)
     Route: 065
     Dates: start: 2011

REACTIONS (32)
  - Anger [Unknown]
  - Confusional state [Unknown]
  - Hypoaesthesia [Unknown]
  - Localised infection [Recovering/Resolving]
  - Malaise [Unknown]
  - Testicular pain [Unknown]
  - Feeling of body temperature change [Unknown]
  - Stress [Unknown]
  - Vomiting [Unknown]
  - Seizure [Recovering/Resolving]
  - Anxiety [Unknown]
  - Complex partial seizures [Unknown]
  - Pain in extremity [Unknown]
  - Viral infection [Unknown]
  - Nasopharyngitis [Unknown]
  - Petit mal epilepsy [Unknown]
  - Learning disability [Unknown]
  - Pharyngitis [Unknown]
  - Dry eye [Unknown]
  - Paranoia [Recovering/Resolving]
  - Feeling abnormal [Unknown]
  - Memory impairment [Unknown]
  - Temporomandibular joint syndrome [Unknown]
  - Head injury [Unknown]
  - Generalised tonic-clonic seizure [Unknown]
  - Agitation [Unknown]
  - Vision blurred [Unknown]
  - Somnolence [Unknown]
  - Nervousness [Recovering/Resolving]
  - Depression [Unknown]
  - Aggression [Unknown]
  - Therapeutic response unexpected [Unknown]

NARRATIVE: CASE EVENT DATE: 2012
